FAERS Safety Report 9430446 (Version 1)
Quarter: 2013Q3

REPORT INFORMATION
  Report Type: Spontaneous
  Country: FR (occurrence: FR)
  Receive Date: 20130730
  Receipt Date: 20130730
  Transmission Date: 20140515
  Serious: Yes (Other)
  Sender: FDA-Public Use
  Company Number: FR-VIIV HEALTHCARE LIMITED-B0910829A

PATIENT
  Age: 0 Day
  Sex: Female

DRUGS (9)
  1. RETROVIR [Suspect]
     Indication: PROPHYLAXIS AGAINST HIV INFECTION
     Route: 064
     Dates: start: 20130520
  2. FLAGYL [Suspect]
     Indication: PRODUCT USED FOR UNKNOWN INDICATION
     Dosage: 1000MG PER DAY
     Route: 065
     Dates: start: 20130512
  3. NORVIR [Suspect]
     Indication: HIV INFECTION
     Dosage: 200MG PER DAY
     Route: 064
     Dates: start: 2010
  4. MORPHINE [Suspect]
     Indication: PRODUCT USED FOR UNKNOWN INDICATION
     Dosage: 300MCG PER DAY
     Route: 064
     Dates: start: 20130520
  5. PREZISTA [Suspect]
     Indication: HIV INFECTION
     Dosage: 1200MG PER DAY
     Route: 064
     Dates: start: 2010
  6. SUFENTANIL [Suspect]
     Indication: PRODUCT USED FOR UNKNOWN INDICATION
     Dosage: 3MCG SINGLE DOSE
     Route: 064
     Dates: start: 20130520
  7. BUPIVACAINE [Suspect]
     Indication: PRODUCT USED FOR UNKNOWN INDICATION
     Dosage: 10MG SINGLE DOSE
     Route: 064
     Dates: start: 20130520
  8. DELURSAN [Suspect]
     Indication: CHOLESTASIS OF PREGNANCY
     Route: 064
     Dates: start: 20130412
  9. ISENTRESS [Suspect]
     Indication: HIV INFECTION
     Route: 064
     Dates: end: 20130507

REACTIONS (2)
  - Neonatal hypotension [Recovered/Resolved]
  - Foetal exposure during pregnancy [Unknown]
